FAERS Safety Report 9708641 (Version 2)
Quarter: 2014Q1

REPORT INFORMATION
  Report Type: Spontaneous
  Country: CA (occurrence: None)
  Receive Date: 20131121
  Receipt Date: 20140321
  Transmission Date: 20141002
  Serious: Yes (Other)
  Sender: FDA-Public Use
  Company Number: 2013-CA-003512

PATIENT
  Age: 44 Year
  Sex: Female

DRUGS (6)
  1. XYREM [Suspect]
     Indication: PRODUCT USED FOR UNKNOWN INDICATION
     Route: 048
  2. CLARITIN ALLERGY\SINUS [Suspect]
     Indication: PRODUCT USED FOR UNKNOWN INDICATION
  3. RABEPRAZOLE EC [Suspect]
     Indication: PRODUCT USED FOR UNKNOWN INDICATION
     Dosage: 1, QD
  4. ALVESCO [Concomitant]
  5. MODAFINIL (MODAFINIL) [Concomitant]
  6. VENTOLIN (SALBUTAMOL) [Concomitant]

REACTIONS (9)
  - Convulsion [None]
  - Paralysis [None]
  - Dyskinesia [None]
  - Drug interaction [None]
  - Gait disturbance [None]
  - Hypoaesthesia oral [None]
  - Oral discomfort [None]
  - Sleep disorder [None]
  - Amnesia [None]
